FAERS Safety Report 25440688 (Version 2)
Quarter: 2025Q3

REPORT INFORMATION
  Report Type: Report from Study
  Country: JP (occurrence: JP)
  Receive Date: 20250616
  Receipt Date: 20250912
  Transmission Date: 20251020
  Serious: Yes (Hospitalization)
  Sender: EISAI
  Company Number: JP-Eisai-202503049_LEQ_P_1

PATIENT
  Age: 75 Year
  Sex: Female
  Weight: 41 kg

DRUGS (7)
  1. LEQEMBI [Suspect]
     Active Substance: LECANEMAB-IRMB
     Indication: Dementia Alzheimer^s type
     Route: 041
     Dates: start: 20241113, end: 20241211
  2. VITAMINS [Concomitant]
     Active Substance: VITAMINS
     Route: 048
  3. TRAMADOL HYDROCHLORIDE [Concomitant]
     Active Substance: TRAMADOL HYDROCHLORIDE
     Route: 048
  4. ALFACALCIDOL [Concomitant]
     Active Substance: ALFACALCIDOL
     Route: 048
  5. CALONAL [Concomitant]
     Active Substance: ACETAMINOPHEN
     Route: 048
  6. TERIPARATIDE [Concomitant]
     Active Substance: TERIPARATIDE
  7. RAMELTEON [Concomitant]
     Active Substance: RAMELTEON
     Route: 048

REACTIONS (1)
  - Alcohol poisoning [Unknown]
